FAERS Safety Report 7979727-0 (Version None)
Quarter: 2011Q4

REPORT INFORMATION
  Report Type: 
  Country: None (occurrence: None)
  Receive Date: 20111214
  Receipt Date: 20111128
  Transmission Date: 20120403
  Serious: Yes (Other)
  Sender: FDA-Public Use
  Company Number: RU-ROCHE-1016979

PATIENT
  Sex: Female

DRUGS (1)
  1. XELODA [Suspect]
     Indication: BREAST CANCER METASTATIC
     Route: 048

REACTIONS (5)
  - ANAEMIA [None]
  - NEUTROPENIA [None]
  - DISEASE PROGRESSION [None]
  - LEUKOPENIA [None]
  - THROMBOPHLEBITIS [None]
